FAERS Safety Report 9693415 (Version 2)
Quarter: 2013Q4

REPORT INFORMATION
  Report Type: Spontaneous
  Country: MX (occurrence: MX)
  Receive Date: 20131118
  Receipt Date: 20131118
  Transmission Date: 20140711
  Serious: Yes (Death)
  Sender: FDA-Public Use
  Company Number: MX-ELI_LILLY_AND_COMPANY-MX201310008742

PATIENT
  Age: 50 Year
  Sex: Male

DRUGS (2)
  1. ALIMTA [Suspect]
     Indication: NON-SMALL CELL LUNG CANCER
     Dosage: 500 MG/M2, CYCLICAL
  2. CISPLATIN [Concomitant]
     Dosage: 75 MG/M2, CYCLICAL

REACTIONS (2)
  - Pneumonia [Fatal]
  - Pulmonary embolism [Fatal]
